FAERS Safety Report 4686586-0 (Version None)
Quarter: 2005Q2

REPORT INFORMATION
  Report Type: 
  Country: None (occurrence: None)
  Receive Date: 20050607
  Receipt Date: 20050527
  Transmission Date: 20051028
  Serious: Yes (Hospitalization)
  Sender: FDA-Public Use
  Company Number: 200512092BCC

PATIENT
  Age: 24 Year
  Sex: Female
  Weight: 38.5557 kg

DRUGS (4)
  1. MILK OF MAGNESIA TAB [Suspect]
     Indication: CONSTIPATION
     Dosage: 2400 MG, QD, ORAL
     Route: 048
  2. TEGRETOL [Concomitant]
  3. PREVACID [Concomitant]
  4. VIOKASE [Concomitant]

REACTIONS (1)
  - CHOLELITHIASIS [None]
